FAERS Safety Report 24813536 (Version 1)
Quarter: 2025Q1

REPORT INFORMATION
  Report Type: Spontaneous
  Country: JP (occurrence: JP)
  Receive Date: 20250107
  Receipt Date: 20250107
  Transmission Date: 20250409
  Serious: Yes (Other)
  Sender: Phathom Pharmaceuticals
  Company Number: JP-PHATHOM PHARMACEUTICALS INC.-2024PHT01601

PATIENT
  Age: 76 Year
  Sex: Male

DRUGS (1)
  1. VONOPRAZAN [Suspect]
     Active Substance: VONOPRAZAN
     Indication: Gastrooesophageal reflux disease
     Route: 065

REACTIONS (3)
  - Gastric prolapse [Unknown]
  - Rebound acid hypersecretion [Unknown]
  - Polyp [Unknown]
